FAERS Safety Report 9996272 (Version 1)
Quarter: 2014Q1

REPORT INFORMATION
  Report Type: Spontaneous
  Country: US (occurrence: None)
  Receive Date: 20140221
  Receipt Date: 20140221
  Transmission Date: 20141002
  Serious: No
  Sender: FDA-Public Use
  Company Number: 1000052410

PATIENT
  Age: 46 Year
  Sex: Male

DRUGS (4)
  1. TUDORZA PRESSAIR [Suspect]
     Indication: BRONCHITIS
     Dosage: 800MCG (400 MCG, 2 IN 1 D)
     Route: 055
     Dates: start: 20131217
  2. XANAX (ALPRAZOLAM) - (ALPRAZOLAM) [Concomitant]
  3. NEXIUM (ESOMEPRAZOLE) (ESOMEPRAZOLE) [Concomitant]
  4. ALBUTEROL (ALBUTEROL) (ALBUTEROL) [Concomitant]

REACTIONS (2)
  - Eye pruritus [None]
  - Dry eye [None]
